FAERS Safety Report 16833788 (Version 3)
Quarter: 2020Q1

REPORT INFORMATION
  Report Type: Spontaneous
  Country: JP (occurrence: JP)
  Receive Date: 20190920
  Receipt Date: 20200214
  Transmission Date: 20200409
  Serious: Yes (Hospitalization)
  Sender: FDA-Public Use
  Company Number: JP-009507513-1908JPN011753

PATIENT
  Age: 90 Year
  Sex: Female

DRUGS (2)
  1. FIDAXOMICIN [Suspect]
     Active Substance: FIDAXOMICIN
     Indication: PSEUDOMEMBRANOUS COLITIS
     Dosage: 400 MG/DAY, UNKNOWN FREQ.
     Route: 048
     Dates: start: 201906, end: 201906
  2. FIDAXOMICIN [Suspect]
     Active Substance: FIDAXOMICIN
     Dosage: 400 MG/DAY, UNKNOWN FREQ.
     Route: 048
     Dates: start: 20190801, end: 20190808

REACTIONS (1)
  - Infection reactivation [Recovered/Resolved]

NARRATIVE: CASE EVENT DATE: 20190801
